FAERS Safety Report 12430163 (Version 1)
Quarter: 2016Q2

REPORT INFORMATION
  Report Type: Spontaneous
  Country: IT (occurrence: IT)
  Receive Date: 20160602
  Receipt Date: 20160602
  Transmission Date: 20160815
  Serious: Yes (Hospitalization)
  Sender: FDA-Public Use
  Company Number: IT-SA-2016SA103480

PATIENT
  Age: 86 Year
  Sex: Male

DRUGS (8)
  1. CARDIOASPIRIN [Suspect]
     Active Substance: ASPIRIN
     Indication: THROMBOSIS PROPHYLAXIS
     Route: 048
     Dates: start: 20150101, end: 20151114
  2. CLEXANE [Suspect]
     Active Substance: ENOXAPARIN SODIUM
     Indication: THROMBOSIS PROPHYLAXIS
     Dosage: 8000 IU (LESS THAN 1000) DAILY
     Route: 058
     Dates: start: 20150101, end: 20151114
  3. NORVASC [Concomitant]
     Active Substance: AMLODIPINE BESYLATE
     Route: 065
  4. INEGY [Concomitant]
     Active Substance: EZETIMIBE\SIMVASTATIN
     Dosage: INEGY (EZETIMIBE/SIMVASTATIN) 10 MG / 20 MG TABLETS IN VIAL HDPE WHITE
     Route: 065
  5. MADOPAR [Concomitant]
     Active Substance: BENSERAZIDE HYDROCHLORIDE\LEVODOPA
     Dosage: MADOPAR (BENSERAZIDE HYDROCHLORIDE/LEVODOPA) 200 MG + 50 MG DIVISIBLE TABLETS
     Route: 065
  6. LORTAAN [Concomitant]
     Active Substance: LOSARTAN POTASSIUM
     Dosage: LORTAAN (LOSARTAN POTASSIUM) 50 MG FILM COATED TABLETS
     Route: 065
  7. TAMSULOSIN [Concomitant]
     Active Substance: TAMSULOSIN
     Route: 065
  8. ZANTAC [Concomitant]
     Active Substance: RANITIDINE HYDROCHLORIDE
     Route: 065

REACTIONS (4)
  - Loss of consciousness [Unknown]
  - Duodenal ulcer haemorrhage [Unknown]
  - Anaemia [Unknown]
  - Syncope [Unknown]

NARRATIVE: CASE EVENT DATE: 20151114
